FAERS Safety Report 4561215-5 (Version None)
Quarter: 2005Q1

REPORT INFORMATION
  Report Type: 
  Country: None (occurrence: None)
  Receive Date: 20050121
  Receipt Date: 20050111
  Transmission Date: 20050727
  Serious: Yes (Other)
  Sender: FDA-Public Use
  Company Number: L05-SVN-00137-01

PATIENT
  Age: 74 Year
  Sex: Male

DRUGS (4)
  1. PROPRANOLOL HYDROCHLORIDE [Suspect]
     Indication: ESSENTIAL TREMOR
     Dosage: 120 MG QD
  2. PRORANOLOL (PROPRANOLOL) [Suspect]
     Indication: ESSENTIAL TREMOR
     Dosage: 40 MG QD
  3. CIPROTERONE [Concomitant]
  4. OLANZAPINE [Concomitant]

REACTIONS (6)
  - BLOOD PRESSURE DIASTOLIC DECREASED [None]
  - DELIRIUM [None]
  - DEPRESSED LEVEL OF CONSCIOUSNESS [None]
  - DISORIENTATION [None]
  - INSOMNIA [None]
  - RESTLESSNESS [None]
